FAERS Safety Report 5445070-7 (Version None)
Quarter: 2007Q3

REPORT INFORMATION
  Report Type: 
  Country: None (occurrence: None)
  Receive Date: 20070906
  Receipt Date: 20070824
  Transmission Date: 20080115
  Serious: Yes (Hospitalization)
  Sender: FDA-Public Use
  Company Number: US-PFIZER INC-2007066427

PATIENT
  Sex: Male
  Weight: 87 kg

DRUGS (9)
  1. SUTENT [Suspect]
     Indication: RENAL CELL CARCINOMA STAGE UNSPECIFIED
     Route: 048
     Dates: start: 20070628, end: 20070724
  2. OMEPRAZOLE [Concomitant]
     Indication: GASTROOESOPHAGEAL REFLUX DISEASE
     Route: 048
     Dates: start: 20040101
  3. HYZAAR [Concomitant]
     Indication: HYPERTENSION
     Route: 048
     Dates: start: 20060101, end: 20070724
  4. CRESTOR [Concomitant]
     Indication: BLOOD CHOLESTEROL INCREASED
     Route: 048
     Dates: start: 20050101, end: 20070724
  5. FOLIC ACID [Concomitant]
     Route: 048
     Dates: start: 20050101, end: 20070724
  6. CALCIUM [Concomitant]
     Route: 048
     Dates: start: 20050101, end: 20070724
  7. FISH OIL [Concomitant]
     Route: 048
     Dates: start: 20050101, end: 20070724
  8. OXYCONTIN [Concomitant]
     Route: 048
     Dates: start: 20070403, end: 20070724
  9. ASPIRIN [Concomitant]
     Route: 048
     Dates: end: 20070724

REACTIONS (1)
  - RENAL FAILURE [None]
